FAERS Safety Report 4413914-3 (Version None)
Quarter: 2004Q3

REPORT INFORMATION
  Report Type: 
  Country: None (occurrence: None)
  Receive Date: 20040803
  Receipt Date: 20040726
  Transmission Date: 20050211
  Serious: Yes (Other)
  Sender: FDA-Public Use
  Company Number: GB-BRISTOL-MYERS SQUIBB COMPANY-12654604

PATIENT
  Sex: Male

DRUGS (1)
  1. ERBITUX [Suspect]
     Route: 042

REACTIONS (2)
  - SKIN LESION [None]
  - SKIN ULCER [None]
